FAERS Safety Report 18082631 (Version 1)
Quarter: 2020Q3

REPORT INFORMATION
  Report Type: Spontaneous
  Country: GB (occurrence: GB)
  Receive Date: 20200729
  Receipt Date: 20200729
  Transmission Date: 20201103
  Serious: Yes (Death, Other)
  Sender: FDA-Public Use
  Company Number: GB-SA-2020SA195249

PATIENT

DRUGS (12)
  1. DUPILUMAB [Suspect]
     Active Substance: DUPILUMAB
     Indication: ECZEMA
     Route: 058
     Dates: start: 201912, end: 20200518
  2. BISOPROLOL [Concomitant]
     Active Substance: BISOPROLOL
  3. CLOPIDOGREL [Concomitant]
     Active Substance: CLOPIDOGREL BISULFATE
  4. SIMVASTATIN. [Concomitant]
     Active Substance: SIMVASTATIN
  5. MONOMIL XL [Concomitant]
     Active Substance: ISOSORBIDE MONONITRATE
  6. AMLODIPINE [Concomitant]
     Active Substance: AMLODIPINE BESYLATE
  7. MEBEVERINE [Concomitant]
     Active Substance: MEBEVERINE
  8. DIHYDROCODEINE [Concomitant]
     Active Substance: DIHYDROCODEINE
  9. AMITRIPTYLINE [Concomitant]
     Active Substance: AMITRIPTYLINE
  10. LOSARTAN. [Concomitant]
     Active Substance: LOSARTAN
  11. TRAMADOL. [Concomitant]
     Active Substance: TRAMADOL
  12. ACETYLSALICYLIC ACID [Concomitant]
     Active Substance: ASPIRIN

REACTIONS (10)
  - Cerebrovascular accident [Unknown]
  - Hypernatraemia [Unknown]
  - Acute kidney injury [Unknown]
  - Status epilepticus [Unknown]
  - Thalamic infarction [Unknown]
  - Constipation [Unknown]
  - Loss of consciousness [Unknown]
  - Sepsis [Fatal]
  - Pneumonia [Unknown]
  - Urinary tract infection [Unknown]

NARRATIVE: CASE EVENT DATE: 20200520
